FAERS Safety Report 15284344 (Version 4)
Quarter: 2018Q3

REPORT INFORMATION
  Report Type: Spontaneous
  Country: US (occurrence: US)
  Receive Date: 20180816
  Receipt Date: 20180927
  Transmission Date: 20181010
  Serious: No
  Sender: FDA-Public Use
  Company Number: US-TEVA-2018-US-945059

PATIENT
  Sex: Female

DRUGS (1)
  1. TEVA CLONAZEPAM [Suspect]
     Active Substance: CLONAZEPAM
     Indication: ARRHYTHMIA
     Route: 065

REACTIONS (10)
  - Irritability [Unknown]
  - Insomnia [Unknown]
  - Feeling abnormal [Not Recovered/Not Resolved]
  - Product substitution issue [Unknown]
  - Nausea [Unknown]
  - Middle insomnia [Unknown]
  - Somnolence [Unknown]
  - Headache [Unknown]
  - Migraine [Unknown]
  - Drug ineffective [Unknown]
